FAERS Safety Report 25362514 (Version 1)
Quarter: 2025Q2

REPORT INFORMATION
  Report Type: Spontaneous
  Country: CN (occurrence: CN)
  Receive Date: 20250527
  Receipt Date: 20250527
  Transmission Date: 20250716
  Serious: Yes (Other)
  Sender: GILEAD
  Company Number: CN-GILEAD-2025-0714757

PATIENT
  Age: 42 Year
  Sex: Male

DRUGS (1)
  1. VIREAD [Suspect]
     Active Substance: TENOFOVIR DISOPROXIL FUMARATE
     Indication: Hepatitis B
     Route: 065

REACTIONS (4)
  - Renal injury [Unknown]
  - Hepatic cirrhosis [Unknown]
  - Blood glucose increased [Unknown]
  - Glycosylated haemoglobin decreased [Unknown]
